FAERS Safety Report 9286253 (Version 2)
Quarter: 2013Q2

REPORT INFORMATION
  Report Type: Spontaneous
  Country: GB (occurrence: GB)
  Receive Date: 20130513
  Receipt Date: 20130520
  Transmission Date: 20140414
  Serious: Yes (Life-Threatening, Hospitalization)
  Sender: FDA-Public Use
  Company Number: PHFR2012GB004555

PATIENT
  Age: 28 Year
  Sex: Female

DRUGS (7)
  1. CLOZARIL [Suspect]
     Indication: SCHIZOPHRENIA
     Dosage: 200 MG, BID
     Route: 048
     Dates: start: 20081204
  2. CLOZARIL [Suspect]
     Dosage: 63X100MG OVERDOSE
     Route: 048
     Dates: start: 20120812, end: 20120817
  3. VENLAFEX XL [Concomitant]
     Indication: DEPRESSION
     Dosage: 225 MG, DAILY
     Route: 048
  4. MIRTAZAPINE [Concomitant]
     Indication: DEPRESSION
     Dosage: 30 MG, DAILY
     Route: 048
  5. NORETHISTERONE [Concomitant]
     Indication: ANXIETY
     Dosage: 5 MG, UNK
     Route: 048
  6. HALOPERIDOL [Concomitant]
     Indication: PSYCHOTIC DISORDER
     Dosage: 5 MG, PRN
     Route: 048
  7. CLONAZEPAM [Concomitant]
     Indication: ANXIETY
     Dosage: 1 MG, QDS, PRN
     Route: 048

REACTIONS (7)
  - Disorientation [Recovered/Resolved]
  - Overdose [Recovered/Resolved]
  - Antipsychotic drug level increased [Recovered/Resolved]
  - Confusional state [Recovered/Resolved]
  - Delirium [Recovered/Resolved]
  - Electrocardiogram T wave inversion [Recovering/Resolving]
  - Tachycardia [Recovering/Resolving]
